FAERS Safety Report 4811266-8 (Version None)
Quarter: 2005Q4

REPORT INFORMATION
  Report Type: 
  Country: None (occurrence: None)
  Receive Date: 20051025
  Receipt Date: 20050503
  Transmission Date: 20060501
  Serious: Yes (Death)
  Sender: FDA-Public Use
  Company Number: GBS050818073

PATIENT
  Age: 68 Year
  Sex: Female

DRUGS (4)
  1. FORTEO [Suspect]
     Indication: OSTEOPOROSIS
     Dosage: 20 UG
     Dates: start: 20031201, end: 20050305
  2. CALCICHEW D3 FORTE [Concomitant]
  3. LANSOPRAZOLE [Concomitant]
  4. TRAMADOL [Concomitant]

REACTIONS (4)
  - GALLBLADDER PERFORATION [None]
  - PNEUMONIA [None]
  - POST PROCEDURAL COMPLICATION [None]
  - RESPIRATORY FAILURE [None]
